FAERS Safety Report 21703738 (Version 1)
Quarter: 2022Q4

REPORT INFORMATION
  Report Type: Spontaneous
  Country: US (occurrence: US)
  Receive Date: 20221209
  Receipt Date: 20221209
  Transmission Date: 20230113
  Serious: Yes (Death, Other)
  Sender: FDA-Public Use
  Company Number: US-BIOVITRUM-2022US14548

PATIENT
  Sex: Female

DRUGS (1)
  1. GAMIFANT [Suspect]
     Active Substance: EMAPALUMAB-LZSG
     Indication: Transplant failure

REACTIONS (4)
  - Fungal infection [Fatal]
  - Systemic candida [Unknown]
  - Haemophagocytic lymphohistiocytosis [Unknown]
  - Off label use [Unknown]
